FAERS Safety Report 5332183-3 (Version None)
Quarter: 2007Q2

REPORT INFORMATION
  Report Type: 
  Country: None (occurrence: None)
  Receive Date: 20070306
  Receipt Date: 20060131
  Transmission Date: 20071010
  Serious: Yes (Other)
  Sender: FDA-Public Use
  Company Number: A03200600637

PATIENT
  Age: 67 Year
  Sex: Male
  Weight: 91.61 kg

DRUGS (9)
  1. PLAVIX [Suspect]
     Indication: STENT PLACEMENT
     Dosage: 75 MG QD - ORAL
     Route: 048
     Dates: start: 20060109
  2. POTASSIUM CHLORIDE [Concomitant]
  3. NICOTINIC ACID [Concomitant]
  4. FEXOFENADINE [Concomitant]
  5. ACETYLSALICYLIC ACID SRT [Concomitant]
  6. LOSARTAN POTASSIUM [Concomitant]
  7. ATORVASTATIN [Concomitant]
  8. FUROSEMIDE [Concomitant]
  9. FORMOTEROL FUMARATE [Concomitant]

REACTIONS (3)
  - CONTUSION [None]
  - CORONARY ARTERY OCCLUSION [None]
  - HAEMORRHAGIC DIATHESIS [None]
